FAERS Safety Report 21889381 (Version 1)
Quarter: 2023Q1

REPORT INFORMATION
  Report Type: Report from Study
  Country: US (occurrence: US)
  Receive Date: 20230120
  Receipt Date: 20230120
  Transmission Date: 20230418
  Serious: Yes (Other)
  Sender: FDA-Public Use
  Company Number: US-ABBVIE-4276424

PATIENT
  Age: 20 Year
  Sex: Female

DRUGS (2)
  1. SKYRIZI [Suspect]
     Active Substance: RISANKIZUMAB-RZAA
     Indication: Psoriasis
     Dosage: DRUG STOP DATE: 2022
     Route: 058
     Dates: start: 20220630
  2. SKYRIZI [Suspect]
     Active Substance: RISANKIZUMAB-RZAA
     Dosage: WEEK 0, WEEK 4 AND EVERY 12 WEEKS THEREAFTER
     Route: 058
     Dates: start: 20221103

REACTIONS (1)
  - Tonsillectomy [Unknown]

NARRATIVE: CASE EVENT DATE: 20221001
